FAERS Safety Report 19909702 (Version 1)
Quarter: 2021Q4

REPORT INFORMATION
  Report Type: Spontaneous
  Country: FR (occurrence: FR)
  Receive Date: 20211002
  Receipt Date: 20211002
  Transmission Date: 20220303
  Serious: Yes (Other)
  Sender: FDA-Public Use
  Company Number: FR-TEVA-2021-FR-1958935

PATIENT
  Sex: Male

DRUGS (1)
  1. PREGABALIN [Suspect]
     Active Substance: PREGABALIN

REACTIONS (7)
  - Sexual dysfunction [Unknown]
  - Male reproductive tract disorder [Unknown]
  - Libido increased [Unknown]
  - Blood testosterone decreased [Unknown]
  - Aphasia [Unknown]
  - Swelling [Unknown]
  - Gynaecomastia [Unknown]
